FAERS Safety Report 6113030-9 (Version None)
Quarter: 2009Q1

REPORT INFORMATION
  Report Type: 
  Country: None (occurrence: None)
  Receive Date: 20090312
  Receipt Date: 20090305
  Transmission Date: 20090719
  Serious: Yes (Hospitalization)
  Sender: FDA-Public Use
  Company Number: B0564450A

PATIENT
  Age: 89 Year
  Sex: Male

DRUGS (10)
  1. ZINACEF [Suspect]
     Indication: PNEUMONIA
     Dosage: 4.5G PER DAY
     Route: 065
     Dates: start: 20081229, end: 20090109
  2. ALVEDON [Concomitant]
  3. CHLOROMYCETIN [Concomitant]
  4. FURADANTIN [Concomitant]
     Indication: URINARY TRACT INFECTION
  5. BEHEPAN [Concomitant]
  6. LASIX [Concomitant]
  7. LAKTULOS [Concomitant]
     Route: 048
  8. OXASCAND [Concomitant]
  9. IMDUR [Concomitant]
  10. NOVOLOG MIX 70/30 [Concomitant]

REACTIONS (3)
  - DEPRESSED LEVEL OF CONSCIOUSNESS [None]
  - PYREXIA [None]
  - THROMBOCYTOPENIA [None]
